FAERS Safety Report 19032461 (Version 2)
Quarter: 2021Q2

REPORT INFORMATION
  Report Type: Spontaneous
  Country: IT (occurrence: IT)
  Receive Date: 20210319
  Receipt Date: 20210401
  Transmission Date: 20210717
  Serious: Yes (Other)
  Sender: FDA-Public Use
  Company Number: IT-JNJFOC-20210336604

PATIENT
  Age: 66 Year
  Sex: Male

DRUGS (8)
  1. EMEND [Concomitant]
     Active Substance: APREPITANT
  2. DEXAMETHASONE. [Concomitant]
     Active Substance: DEXAMETHASONE
  3. OMEGA 3 ACID ETHYL ESTERS [Concomitant]
     Active Substance: OMEGA-3-ACID ETHYL ESTERS
  4. ATORVASTATIN [Concomitant]
     Active Substance: ATORVASTATIN
  5. YONDELIS [Suspect]
     Active Substance: TRABECTEDIN
     Indication: LIPOSARCOMA
     Dosage: STRENGTH 0.25 AND 1 MG
     Route: 042
     Dates: start: 20201130, end: 20210203
  6. COMBISARTAN [Concomitant]
     Active Substance: HYDROCHLOROTHIAZIDE\VALSARTAN
  7. CARDIOASPIRIN [Concomitant]
     Active Substance: ASPIRIN
  8. TAMSULOSIN HYDROCHLORIDE. [Concomitant]
     Active Substance: TAMSULOSIN HYDROCHLORIDE

REACTIONS (5)
  - Thrombocytopenia [Recovered/Resolved with Sequelae]
  - Anaemia [Recovered/Resolved with Sequelae]
  - Hyperpyrexia [Recovered/Resolved with Sequelae]
  - Neutropenia [Recovered/Resolved with Sequelae]
  - Stomatitis [Recovered/Resolved with Sequelae]

NARRATIVE: CASE EVENT DATE: 20210211
